FAERS Safety Report 8046279-9 (Version None)
Quarter: 2012Q1

REPORT INFORMATION
  Report Type: 
  Country: None (occurrence: None)
  Receive Date: 20120113
  Receipt Date: 20120105
  Transmission Date: 20120608
  Serious: Yes (Hospitalization)
  Sender: FDA-Public Use
  Company Number: PHHY2012US002617

PATIENT
  Sex: Male

DRUGS (4)
  1. CUBICIN [Suspect]
     Indication: DEVICE RELATED INFECTION
     Dosage: 6 MG/KG, QD
     Route: 042
     Dates: start: 20111201
  2. RIFAMPICIN [Suspect]
     Indication: STAPHYLOCOCCAL INFECTION
  3. CUBICIN [Suspect]
     Indication: STAPHYLOCOCCAL INFECTION
  4. RIFAMPICIN [Suspect]
     Indication: DEVICE RELATED INFECTION
     Dates: start: 20111201

REACTIONS (2)
  - SEPSIS [None]
  - RENAL FAILURE ACUTE [None]
